FAERS Safety Report 9660264 (Version 1)
Quarter: 2013Q4

REPORT INFORMATION
  Report Type: Spontaneous
  Country: US (occurrence: US)
  Receive Date: 20131031
  Receipt Date: 20131031
  Transmission Date: 20140711
  Serious: No
  Sender: FDA-Public Use
  Company Number: US-BAYER-2013-132598

PATIENT
  Age: 49 Year
  Sex: Male
  Weight: 104.31 kg

DRUGS (2)
  1. ALEVE TABLET [Suspect]
     Indication: BACK PAIN
     Dosage: EVERY 4.5 HOURS
  2. ALEVE TABLET [Suspect]
     Indication: LOCAL SWELLING

REACTIONS (3)
  - Extra dose administered [None]
  - Off label use [None]
  - Drug ineffective [None]
